FAERS Safety Report 5069357-5 (Version None)
Quarter: 2006Q3

REPORT INFORMATION
  Report Type: 
  Country: None (occurrence: None)
  Receive Date: 20060803
  Receipt Date: 20060609
  Transmission Date: 20061208
  Serious: Yes (Death, Hospitalization)
  Sender: FDA-Public Use
  Company Number: US-AVENTIS-200615076US

PATIENT
  Sex: Male

DRUGS (9)
  1. KETEK [Suspect]
     Indication: BRONCHITIS ACUTE
     Route: 048
     Dates: start: 20060528, end: 20060530
  2. LISINOPRIL [Concomitant]
     Indication: HYPERTENSION
     Dosage: DOSE: UNK
     Route: 048
     Dates: start: 20030101
  3. LASIX [Concomitant]
     Indication: HYPERTENSION
     Dosage: DOSE: UNK
     Route: 048
     Dates: start: 20030101
  4. SYNTHROID [Concomitant]
     Indication: HYPOTHYROIDISM
     Dosage: DOSE: UNK
     Route: 048
     Dates: start: 20030101
  5. ASPIRIN [Concomitant]
     Indication: CORONARY ARTERY DISEASE
     Dosage: DOSE: UNK
     Route: 048
     Dates: start: 20030101
  6. LANOXIN [Concomitant]
     Dosage: DOSE: UNK
  7. FLOMAX [Concomitant]
     Dosage: DOSE: UNK
  8. POTASSIUM CHLORIDE [Concomitant]
     Indication: HYPERTENSION
     Dosage: DOSE: UNK
     Route: 048
     Dates: start: 20030101
  9. NEXIUM [Concomitant]
     Indication: GASTROOESOPHAGEAL REFLUX DISEASE
     Dosage: DOSE: UNK
     Route: 048
     Dates: start: 20030101

REACTIONS (16)
  - ACIDOSIS [None]
  - ALANINE AMINOTRANSFERASE INCREASED [None]
  - ASPARTATE AMINOTRANSFERASE INCREASED [None]
  - BLOOD ALKALINE PHOSPHATASE INCREASED [None]
  - BLOOD BILIRUBIN INCREASED [None]
  - BRONCHITIS [None]
  - CARDIAC ARREST [None]
  - COUGH [None]
  - HEPATIC FAILURE [None]
  - HEPATITIS [None]
  - PNEUMONIA [None]
  - PROTHROMBIN TIME PROLONGED [None]
  - PYREXIA [None]
  - RENAL FAILURE [None]
  - RESPIRATORY FAILURE [None]
  - SEPSIS [None]
